FAERS Safety Report 15861623 (Version 1)
Quarter: 2019Q1

REPORT INFORMATION
  Report Type: Spontaneous
  Country: PT (occurrence: PT)
  Receive Date: 20190124
  Receipt Date: 20190124
  Transmission Date: 20190417
  Serious: Yes (Hospitalization)
  Sender: FDA-Public Use
  Company Number: PT-ACCORD-103308

PATIENT
  Age: 49 Year
  Sex: Male
  Weight: 60 kg

DRUGS (4)
  1. MORFEX [Concomitant]
     Active Substance: FLURAZEPAM HYDROCHLORIDE
     Route: 048
  2. ALLOPURINOL. [Suspect]
     Active Substance: ALLOPURINOL
     Indication: VISCERAL LEISHMANIASIS
     Dosage: HOSPITALIZATION - 300MG / DAY AMBULATORY - 200MG / DAY
     Route: 048
     Dates: start: 20170330, end: 20170531
  3. SULFAMETHOXAZOLE/TRIMETHOPRIM [Concomitant]
     Route: 048
  4. ATRIPLA [Concomitant]
     Active Substance: EFAVIRENZ\EMTRICITABINE\TENOFOVIR DISOPROXIL FUMARATE
     Indication: HIV INFECTION
     Route: 048

REACTIONS (1)
  - Rash vesicular [Recovered/Resolved]

NARRATIVE: CASE EVENT DATE: 20170515
